FAERS Safety Report 5368068-6 (Version None)
Quarter: 2007Q2

REPORT INFORMATION
  Report Type: 
  Country: None (occurrence: None)
  Receive Date: 20070622
  Receipt Date: 20070612
  Transmission Date: 20071010
  Serious: Yes (Other)
  Sender: FDA-Public Use
  Company Number: US-PFIZER INC-2007049206

PATIENT
  Sex: Female

DRUGS (2)
  1. CHANTIX [Suspect]
     Indication: EX-SMOKER
     Dates: start: 20070606, end: 20070608
  2. IBUPROFEN [Concomitant]

REACTIONS (4)
  - ANOREXIA [None]
  - CHEST DISCOMFORT [None]
  - SLEEP DISORDER [None]
  - WEIGHT DECREASED [None]
